FAERS Safety Report 4420464-7 (Version None)
Quarter: 2004Q3

REPORT INFORMATION
  Report Type: 
  Country: None (occurrence: None)
  Receive Date: 20040809
  Receipt Date: 20040305
  Transmission Date: 20050211
  Serious: No
  Sender: FDA-Public Use
  Company Number: US-GLAXOSMITHKLINE-A0501429A

PATIENT
  Age: 39 Year
  Sex: Female

DRUGS (2)
  1. PAXIL CR [Suspect]
     Indication: DEPRESSION
     Dosage: 37.5MG PER DAY
     Route: 048
     Dates: start: 20031101, end: 20040302
  2. THYROID TAB [Concomitant]

REACTIONS (6)
  - ANOREXIA [None]
  - DISTURBANCE IN ATTENTION [None]
  - HYPERHIDROSIS [None]
  - NAUSEA [None]
  - PAIN OF SKIN [None]
  - PHOTOSENSITIVITY REACTION [None]
